FAERS Safety Report 5162010-9 (Version None)
Quarter: 2006Q4

REPORT INFORMATION
  Report Type: 
  Country: None (occurrence: None)
  Receive Date: 20061121
  Receipt Date: 20061108
  Transmission Date: 20070319
  Serious: Yes (Life-Threatening, Hospitalization)
  Sender: FDA-Public Use
  Company Number: DSA_28925_2006

PATIENT
  Age: 45 Year
  Sex: Female
  Weight: 111 kg

DRUGS (1)
  1. TAVOR [Suspect]
     Dosage: 6 MG ONCE PO
     Route: 048
     Dates: start: 20061024, end: 20061024

REACTIONS (3)
  - ACCIDENTAL OVERDOSE [None]
  - FATIGUE [None]
  - MEDICATION ERROR [None]
